FAERS Safety Report 4782572-0 (Version None)
Quarter: 2005Q3

REPORT INFORMATION
  Report Type: 
  Country: None (occurrence: None)
  Receive Date: 20050929
  Receipt Date: 20050330
  Transmission Date: 20060218
  Serious: No
  Sender: FDA-Public Use
  Company Number: US-GLAXOSMITHKLINE-A0551943A

PATIENT
  Age: 84 Year
  Sex: Male

DRUGS (2)
  1. COREG [Suspect]
     Dosage: 3.125MG PER DAY
     Route: 048
  2. COUMADIN [Concomitant]

REACTIONS (3)
  - AMNESIA [None]
  - FATIGUE [None]
  - TREATMENT NONCOMPLIANCE [None]
